FAERS Safety Report 23117188 (Version 2)
Quarter: 2024Q1

REPORT INFORMATION
  Report Type: Report from Study
  Country: JP (occurrence: JP)
  Receive Date: 20231027
  Receipt Date: 20240205
  Transmission Date: 20240410
  Serious: Yes (Death, Life-Threatening, Hospitalization, Other)
  Sender: FDA-Public Use
  Company Number: JP-JAZZ PHARMACEUTICALS-2023-JP-021809

PATIENT
  Age: 57 Year
  Sex: Male
  Weight: 58.1 kg

DRUGS (1)
  1. DEFITELIO [Suspect]
     Active Substance: DEFIBROTIDE SODIUM
     Indication: Venoocclusive liver disease
     Dosage: 25 MILLIGRAM/KILOGRAM, QD
     Route: 042
     Dates: start: 20230506, end: 20230523

REACTIONS (6)
  - Venoocclusive liver disease [Fatal]
  - Gastrointestinal haemorrhage [Fatal]
  - Subarachnoid haemorrhage [Fatal]
  - Hypotension [Recovered/Resolved]
  - Mouth haemorrhage [Recovered/Resolved]
  - Mouth haemorrhage [Recovered/Resolved]

NARRATIVE: CASE EVENT DATE: 20230506
